FAERS Safety Report 25218139 (Version 1)
Quarter: 2025Q2

REPORT INFORMATION
  Report Type: Spontaneous
  Country: US (occurrence: US)
  Receive Date: 20250421
  Receipt Date: 20250421
  Transmission Date: 20250717
  Serious: No
  Sender: VALIDUS
  Company Number: US-VALIDUS PHARMACEUTICALS LLC-US-VDP-2024-019468

PATIENT

DRUGS (2)
  1. BUMEX [Suspect]
     Active Substance: BUMETANIDE
     Indication: Product used for unknown indication
     Dosage: 2MG DAILY
     Route: 065
  2. BUMEX [Suspect]
     Active Substance: BUMETANIDE
     Route: 065

REACTIONS (1)
  - Adverse event [Unknown]
